FAERS Safety Report 6850341-3 (Version None)
Quarter: 2010Q3

REPORT INFORMATION
  Report Type: 
  Country: None (occurrence: None)
  Receive Date: 20100716
  Receipt Date: 20100708
  Transmission Date: 20110219
  Serious: Yes (Hospitalization)
  Sender: FDA-Public Use
  Company Number: KR-ABBOTT-10P-090-0656061-00

PATIENT
  Age: 37 Year
  Sex: Male

DRUGS (12)
  1. KALETRA [Suspect]
     Indication: PRODUCT USED FOR UNKNOWN INDICATION
     Dates: start: 20100222
  2. 3TC/AZT [Concomitant]
     Indication: ANTIRETROVIRAL THERAPY
     Dosage: 900 MG DAILY
     Dates: start: 20100222
  3. MELECT TAB 100 MG [Concomitant]
     Indication: PNEUMONIA
     Route: 048
     Dates: start: 20100221, end: 20100221
  4. TS [Concomitant]
     Indication: ANTIFUNGAL PROPHYLAXIS
     Dosage: 2 TABLETS DAILY
     Route: 048
     Dates: start: 20100214, end: 20100711
  5. TS [Concomitant]
     Dosage: 1 TABLET DAILY
     Route: 048
     Dates: start: 20100712
  6. BROPHYLLINE CAPSULE 100 MG [Concomitant]
     Indication: RHINORRHOEA
     Route: 048
     Dates: start: 20100222, end: 20100527
  7. BROPHYLLINE CAPSULE 100 MG [Concomitant]
     Indication: PRODUCTIVE COUGH
  8. LEVOTUSS [Concomitant]
     Indication: RHINORRHOEA
     Dosage: 6MG/ML, 30 ML DAILY
     Route: 048
     Dates: start: 20100222, end: 20100227
  9. LEVOTUSS [Concomitant]
     Indication: PRODUCTIVE COUGH
  10. KLARICID [Concomitant]
     Indication: PROPHYLAXIS
     Route: 048
     Dates: start: 20100329, end: 20100428
  11. PRODIAX-23 [Concomitant]
     Indication: IMMUNISATION
     Dosage: 25MCG/ML
     Route: 030
     Dates: start: 20100712, end: 20100712
  12. PRODIAX-23 [Concomitant]
     Indication: PNEUMONIA

REACTIONS (1)
  - BIPOLAR DISORDER [None]
